FAERS Safety Report 8799248 (Version 1)
Quarter: 2012Q4

REPORT INFORMATION
  Report Type: Report from Study
  Country: US (occurrence: US)
  Receive Date: 20120920
  Receipt Date: 20120920
  Transmission Date: 20130627
  Serious: Yes (Hospitalization)
  Sender: FDA-Public Use
  Company Number: US-PFIZER INC-2012195919

PATIENT
  Age: 87 Year
  Sex: Female
  Weight: 77.7 kg

DRUGS (23)
  1. BAPINEUZUMAB [Suspect]
     Indication: DEMENTIA ALZHEIMER^S TYPE
     Dosage: 0.5 mg/kg, single
     Route: 042
     Dates: start: 20100520, end: 20100520
  2. BAPINEUZUMAB [Suspect]
     Dosage: 0.5 mg/kg, single
     Route: 042
     Dates: start: 20100806, end: 20100806
  3. BAPINEUZUMAB [Suspect]
     Dosage: 0.5 mg/kg, single
     Route: 042
     Dates: start: 20101111, end: 20101111
  4. BAPINEUZUMAB [Suspect]
     Dosage: 0.5 mg/kg, single
     Route: 042
     Dates: start: 20110203, end: 20110203
  5. BAPINEUZUMAB [Suspect]
     Dosage: 0.5 mg/kg, single
     Route: 042
     Dates: start: 20110505, end: 20110505
  6. BAPINEUZUMAB [Suspect]
     Dosage: 0.5 mg/kg, single
     Route: 042
     Dates: start: 20111213, end: 20111213
  7. LIDOCAINE HCL [Suspect]
     Dosage: 50 mg, as needed
     Route: 042
     Dates: start: 20120719, end: 20120719
  8. DEXAMETHASONE SODIUM PHOSPHATE [Suspect]
     Dosage: 4 mg, single
     Route: 042
     Dates: start: 20120719, end: 20120719
  9. FENTANYL [Suspect]
     Indication: PROCEDURAL PAIN
     Dosage: 100 ug, as needed
     Route: 042
     Dates: start: 20120719, end: 20120719
  10. FENTANYL [Suspect]
     Dosage: 50 ug, as needed
     Route: 042
     Dates: start: 20120719, end: 20120719
  11. PROPOFOL [Suspect]
     Indication: SEDATIVE THERAPY
     Dosage: 130 mg, single
     Route: 042
     Dates: start: 20120719, end: 20120719
  12. ROCURONIUM [Suspect]
     Indication: SEDATIVE THERAPY
     Dosage: 5 mg, as needed
     Route: 042
     Dates: start: 20120719, end: 20120719
  13. ROCURONIUM [Suspect]
     Dosage: 10 mg, as needed
     Route: 042
     Dates: start: 20120719, end: 20120719
  14. NEOSTIGMINE [Suspect]
     Indication: ABDOMINAL DISTENSION
     Dosage: 5 mg, single
     Route: 042
     Dates: start: 20120719, end: 20120719
  15. HYDROMORPHONE [Suspect]
     Indication: PROCEDURAL PAIN
     Dosage: UNK
     Dates: start: 20120721, end: 20120722
  16. TYLENOL [Concomitant]
     Indication: PAIN
     Dosage: 325 mg, prn
     Route: 048
     Dates: start: 1975
  17. TYLENOL [Concomitant]
     Indication: HEADACHE
  18. AMLODIPINE [Concomitant]
     Indication: HYPERTENSION
     Dosage: 5 mg, Once/day
     Route: 048
     Dates: start: 20100319
  19. IBUPROFEN [Concomitant]
     Dosage: 800 mg, prn
     Route: 048
     Dates: start: 20101210
  20. PRILOSEC [Concomitant]
     Indication: GASTROOESOPHAGEAL REFLUX DISEASE
     Dosage: 25 mg, Once/day
     Route: 048
     Dates: start: 20110826
  21. ALPRAZOLAM [Concomitant]
     Indication: ANXIETY
     Dosage: 25 mg, prn
     Route: 048
     Dates: start: 20110819
  22. VITAMIN D [Concomitant]
     Indication: VITAMIN D DEFICIENCY
     Dosage: UNK
     Dates: start: 20120311
  23. VITAMIN B12 [Concomitant]
     Indication: VITAMIN B12 DEFICIENCY
     Dosage: UNK
     Route: 030
     Dates: start: 20120607

REACTIONS (1)
  - Confusion postoperative [Recovered/Resolved]
